FAERS Safety Report 12085423 (Version 1)
Quarter: 2016Q1

REPORT INFORMATION
  Report Type: Spontaneous
  Country: US (occurrence: US)
  Receive Date: 20160217
  Receipt Date: 20160217
  Transmission Date: 20160526
  Serious: No
  Sender: FDA-Public Use
  Company Number: US-EISAI MEDICAL RESEARCH-EC-2016-014207

PATIENT
  Sex: Male

DRUGS (6)
  1. FYCOMPA [Suspect]
     Active Substance: PERAMPANEL
     Indication: SEIZURE
     Route: 048
     Dates: start: 201511, end: 201511
  2. VIMPAT [Concomitant]
     Active Substance: LACOSAMIDE
     Indication: SEIZURE
  3. FYCOMPA [Suspect]
     Active Substance: PERAMPANEL
     Route: 048
     Dates: start: 201601
  4. FYCOMPA [Suspect]
     Active Substance: PERAMPANEL
     Route: 048
     Dates: start: 201512, end: 201512
  5. TOPAMAX [Concomitant]
     Active Substance: TOPIRAMATE
     Indication: SEIZURE
  6. FYCOMPA [Suspect]
     Active Substance: PERAMPANEL
     Route: 048
     Dates: start: 201601, end: 201601

REACTIONS (1)
  - Drug withdrawal convulsions [Recovering/Resolving]

NARRATIVE: CASE EVENT DATE: 201512
